FAERS Safety Report 6552503-1 (Version None)
Quarter: 2010Q1

REPORT INFORMATION
  Report Type: 
  Country: None (occurrence: None)
  Receive Date: 20100121
  Receipt Date: 20100107
  Transmission Date: 20100710
  Serious: Yes (Other)
  Sender: FDA-Public Use
  Company Number: 004285

PATIENT
  Age: 6 Year
  Sex: Male
  Weight: 23 kg

DRUGS (2)
  1. LEVETIRACETAM [Suspect]
     Indication: CONVULSION
     Dosage: (1150 MG, 50 MG/KG - 84 UG/ML INTRAVENOUS (NOT OTHERWISE SPECIFIED)
     Route: 042
  2. SODIUM VALPROATE (NOT SPECIFIED) [Suspect]

REACTIONS (1)
  - THROMBOCYTOPENIA [None]
